FAERS Safety Report 14057720 (Version 3)
Quarter: 2017Q4

REPORT INFORMATION
  Report Type: Spontaneous
  Country: US (occurrence: US)
  Receive Date: 20171006
  Receipt Date: 20171024
  Transmission Date: 20180321
  Serious: No
  Sender: FDA-Public Use
  Company Number: US-GLAXOSMITHKLINE-US2017152985

PATIENT
  Sex: Female

DRUGS (3)
  1. VENTOLIN HFA [Suspect]
     Active Substance: ALBUTEROL SULFATE
     Indication: MUSCLE SPASMS
  2. VENTOLIN HFA [Suspect]
     Active Substance: ALBUTEROL SULFATE
     Indication: ASTHMA
  3. VENTOLIN HFA [Suspect]
     Active Substance: ALBUTEROL SULFATE
     Indication: HYPOPNOEA
     Dosage: 1 PUFF(S), PRN
     Route: 055
     Dates: start: 201709

REACTIONS (6)
  - Headache [Recovered/Resolved]
  - Dry throat [Recovered/Resolved]
  - Productive cough [Recovered/Resolved]
  - Off label use [Unknown]
  - Hypersensitivity [Unknown]
  - Drug ineffective for unapproved indication [Not Recovered/Not Resolved]
